FAERS Safety Report 10722579 (Version 1)
Quarter: 2015Q1

REPORT INFORMATION
  Report Type: Report from Study
  Country: BR (occurrence: BR)
  Receive Date: 20150120
  Receipt Date: 20150120
  Transmission Date: 20150721
  Serious: Yes (Hospitalization)
  Sender: FDA-Public Use
  Company Number: BR-ROCHE-1523233

PATIENT
  Sex: Female
  Weight: 46 kg

DRUGS (8)
  1. GABAPENTIN. [Concomitant]
     Active Substance: GABAPENTIN
  2. PREDNISONE. [Concomitant]
     Active Substance: PREDNISONE
  3. FAMOTIDINE. [Concomitant]
     Active Substance: FAMOTIDINE
  4. HYDROXYCHLOROQUINE [Concomitant]
     Active Substance: HYDROXYCHLOROQUINE
  5. HYDREA [Concomitant]
     Active Substance: HYDROXYUREA
  6. FOLIC ACID. [Concomitant]
     Active Substance: FOLIC ACID
  7. ARNICA [Concomitant]
     Route: 065
  8. ACTEMRA [Suspect]
     Active Substance: TOCILIZUMAB
     Indication: RHEUMATOID ARTHRITIS
     Route: 042
     Dates: start: 201405, end: 201411

REACTIONS (3)
  - Rheumatoid arthritis [Unknown]
  - Intervertebral disc protrusion [Not Recovered/Not Resolved]
  - Pneumonia [Unknown]
